FAERS Safety Report 25613207 (Version 2)
Quarter: 2025Q3

REPORT INFORMATION
  Report Type: Spontaneous
  Country: CN (occurrence: CN)
  Receive Date: 20250728
  Receipt Date: 20250730
  Transmission Date: 20251021
  Serious: Yes (Disabling, Other)
  Sender: Kenvue
  Company Number: CN-KENVUE-20250708248

PATIENT

DRUGS (20)
  1. CHILDRENS MOTRIN [Suspect]
     Active Substance: IBUPROFEN
     Indication: Antipyresis
     Dosage: 10.000 MILLILITER, ONCE A DAY
     Route: 048
     Dates: start: 20250627, end: 20250628
  2. CHILDRENS MOTRIN [Suspect]
     Active Substance: IBUPROFEN
     Dosage: 10 MILLILITER, TWICE A DAY
     Route: 048
     Dates: start: 20250629
  3. CHILDRENS MOTRIN [Suspect]
     Active Substance: IBUPROFEN
     Dosage: 10 MILLILITER, ONCE A DAY
     Route: 048
     Dates: start: 20250630
  4. ACETAMINOPHEN [Suspect]
     Active Substance: ACETAMINOPHEN
     Indication: Pyrexia
     Dosage: 0.500 GRAM, ONCE A DAY, PRN
     Route: 048
     Dates: start: 20250626, end: 20250628
  5. PIPERACILLIN AND TAZOBACTAM [Suspect]
     Active Substance: PIPERACILLIN SODIUM\TAZOBACTAM SODIUM
     Indication: Pneumonia
     Dosage: 4.500 GRAM, THRICE A DAY (IVGTT)
     Route: 041
     Dates: start: 20250626, end: 20250630
  6. CEFOPERAZONE SODIUM\SULBACTAM SODIUM [Suspect]
     Active Substance: CEFOPERAZONE SODIUM\SULBACTAM SODIUM
     Indication: Pneumonia
     Dosage: 3 GRAM, TWICE A DAY (IVGTT) (Q12H)
     Route: 041
     Dates: start: 20250630, end: 20250707
  7. MOXIFLOXACIN HYDROCHLORIDE [Suspect]
     Active Substance: MOXIFLOXACIN HYDROCHLORIDE
     Indication: Pneumonia
     Dosage: 0.400 GRAM, ONCE A DAY (IVGTT)
     Route: 041
     Dates: start: 20250628, end: 20250703
  8. OMEPRAZOLE [Suspect]
     Active Substance: OMEPRAZOLE
     Indication: Gastrointestinal mucosal disorder
     Dosage: 20.000 MILLIGRAM, TWICE A DAY
     Route: 048
     Dates: start: 20250630, end: 20250705
  9. METHYLPREDNISOLONE SODIUM SUCCINATE [Suspect]
     Active Substance: METHYLPREDNISOLONE SODIUM SUCCINATE
     Indication: Antiinflammatory therapy
     Dosage: 40.000 MILLIGRAM, TWICE A DAY
     Route: 041
     Dates: start: 20250630, end: 20250701
  10. METHYLPREDNISOLONE SODIUM SUCCINATE [Suspect]
     Active Substance: METHYLPREDNISOLONE SODIUM SUCCINATE
     Indication: Pneumonia
     Dosage: 40.000 MILLIGRAM, ONCE A DAY
     Route: 041
     Dates: start: 20250702, end: 20250703
  11. METHYLPREDNISOLONE [Suspect]
     Active Substance: METHYLPREDNISOLONE
     Indication: Pneumonia
     Dosage: 20.000 MILLIGRAM, ONCE A DAY
     Route: 048
     Dates: start: 20250704, end: 20250705
  12. LEVOFLOXACIN [Suspect]
     Active Substance: LEVOFLOXACIN
     Indication: Pneumonia
     Dosage: 0.500 GRAM, ONCE A DAY
     Route: 041
     Dates: start: 20250703, end: 20250707
  13. AMINOPHYLLINE\CHLORPHENIRAMINE MALEATE\METHOXYPHENAMINE HYDROCHLORIDE\ [Suspect]
     Active Substance: AMINOPHYLLINE\CHLORPHENIRAMINE MALEATE\METHOXYPHENAMINE HYDROCHLORIDE\NOSCAPINE
     Indication: Cough
     Dosage: 0.3 GRAM, THRICE A DAY
     Route: 048
     Dates: start: 20250626, end: 20250707
  14. AMBROXOL HYDROCHLORIDE [Suspect]
     Active Substance: AMBROXOL HYDROCHLORIDE
     Indication: Sputum abnormal
     Dosage: 30 MILLIGRAM, TWICE A DAY
     Route: 041
     Dates: start: 20250626, end: 20250707
  15. HERBALS [Suspect]
     Active Substance: HERBALS
     Indication: Sputum abnormal
     Dosage: 0.3 GRAM, THRICE A DAY
     Route: 048
     Dates: start: 20250626, end: 20250707
  16. SODIUM CHLORIDE [Suspect]
     Active Substance: SODIUM CHLORIDE
     Indication: Vehicle solution use
     Dosage: 100 MILLILITER, TWICE A DAY
     Route: 041
     Dates: start: 20250630, end: 20250707
  17. SODIUM CHLORIDE [Suspect]
     Active Substance: SODIUM CHLORIDE
     Dosage: 100.000 MILLILITER, THRICE A DAY
     Route: 041
     Dates: start: 20250626, end: 20250630
  18. SODIUM CHLORIDE [Suspect]
     Active Substance: SODIUM CHLORIDE
     Dosage: 100.000 MILLILITER, TWICE A DAY
     Route: 041
     Dates: start: 20250630, end: 20250701
  19. SODIUM CHLORIDE [Suspect]
     Active Substance: SODIUM CHLORIDE
     Dosage: 100.000 MILLILITER, ONCE A DAY
     Route: 041
     Dates: start: 20250702, end: 20250703
  20. SODIUM CHLORIDE [Suspect]
     Active Substance: SODIUM CHLORIDE
     Dosage: 100.000 MILLILITER, TWICE A DAY
     Route: 041
     Dates: start: 20250626, end: 20250707

REACTIONS (2)
  - Off label use [Unknown]
  - Liver injury [Recovering/Resolving]

NARRATIVE: CASE EVENT DATE: 20250627
